FAERS Safety Report 8019430-4 (Version None)
Quarter: 2012Q1

REPORT INFORMATION
  Report Type: 
  Country: None (occurrence: None)
  Receive Date: 20120103
  Receipt Date: 20111228
  Transmission Date: 20120608
  Serious: Yes (Hospitalization, Other)
  Sender: FDA-Public Use
  Company Number: PHEH2011US010635

PATIENT
  Sex: Male
  Weight: 67 kg

DRUGS (5)
  1. ONDANSETRON [Concomitant]
     Dosage: 8 MG, Q12H
     Route: 048
     Dates: start: 20111109
  2. TOPROL-XL [Concomitant]
     Dosage: 25 MG, Q12H
     Route: 048
  3. EXJADE [Suspect]
     Indication: IRON OVERLOAD
     Dosage: 3 DF, QD
     Route: 048
     Dates: start: 20111108, end: 20111129
  4. LIPITOR [Concomitant]
     Dosage: 10 MG, DAILY
     Route: 048
  5. HYDROCHLOROTHIAZIDE [Concomitant]
     Dosage: 25 MG, DAILY
     Route: 048

REACTIONS (7)
  - SKIN EXFOLIATION [None]
  - BLOOD UREA INCREASED [None]
  - BLOOD GLUCOSE INCREASED [None]
  - HAEMATOCRIT DECREASED [None]
  - PALMAR-PLANTAR ERYTHRODYSAESTHESIA SYNDROME [None]
  - ERYTHEMA [None]
  - HAEMOGLOBIN DECREASED [None]
